FAERS Safety Report 4883137-2 (Version None)
Quarter: 2006Q1

REPORT INFORMATION
  Report Type: 
  Country: None (occurrence: None)
  Receive Date: 20060117
  Receipt Date: 20060117
  Transmission Date: 20060701
  Serious: Yes (Hospitalization)
  Sender: FDA-Public Use
  Company Number: None

PATIENT
  Sex: Female
  Weight: 81.3 kg

DRUGS (1)
  1. XIGRIS [Suspect]
     Dosage: STANDARD ?    IV
     Route: 042

REACTIONS (5)
  - ACTIVATED PARTIAL THROMBOPLASTIN TIME PROLONGED [None]
  - EAR HAEMORRHAGE [None]
  - EPISTAXIS [None]
  - PHARYNGEAL HAEMORRHAGE [None]
  - PLATELET COUNT DECREASED [None]
